FAERS Safety Report 8201512-5 (Version None)
Quarter: 2012Q1

REPORT INFORMATION
  Report Type: 
  Country: None (occurrence: None)
  Receive Date: 20120312
  Receipt Date: 20120305
  Transmission Date: 20120608
  Serious: Yes (Hospitalization)
  Sender: FDA-Public Use
  Company Number: CA-GLAXOSMITHKLINE-A0943057A

PATIENT
  Sex: Female
  Weight: 100 kg

DRUGS (6)
  1. PERINDOPRIL ERBUMINE [Concomitant]
  2. TYKERB [Suspect]
     Indication: BREAST CANCER METASTATIC
     Dosage: 1250MG PER DAY
     Route: 048
     Dates: start: 20110723
  3. CELEBREX [Concomitant]
  4. METOPROLOL SUCCINATE [Concomitant]
  5. PANTOPRAZOLE [Concomitant]
  6. XELODA [Suspect]
     Indication: BREAST CANCER
     Dosage: 200MG TWICE PER DAY
     Route: 065
     Dates: start: 20110723, end: 20110921

REACTIONS (10)
  - PAIN IN EXTREMITY [None]
  - DIARRHOEA [None]
  - ERYTHEMA [None]
  - WOUND SECRETION [None]
  - IMMOBILE [None]
  - PALMAR-PLANTAR ERYTHRODYSAESTHESIA SYNDROME [None]
  - ONYCHOMADESIS [None]
  - METASTASES TO CENTRAL NERVOUS SYSTEM [None]
  - NEOPLASM MALIGNANT [None]
  - SPEECH DISORDER [None]
